FAERS Safety Report 7016289-9 (Version None)
Quarter: 2010Q3

REPORT INFORMATION
  Report Type: 
  Country: None (occurrence: None)
  Receive Date: 20100923
  Receipt Date: 20100908
  Transmission Date: 20110219
  Serious: Yes (Other)
  Sender: FDA-Public Use
  Company Number: CIP10002228

PATIENT
  Age: 75 Year
  Sex: Female

DRUGS (5)
  1. RISEDRONATE SODIUM [Suspect]
     Indication: OSTEOPOROSIS POSTMENOPAUSAL
     Dosage: 35 MG ONCE WEEKLY, ORAL
     Route: 048
  2. ESOMEPRAZOLE (ESOMEPRAZOLE) [Concomitant]
  3. ETORICOXIB (ETORICOXIB) [Concomitant]
  4. CALCIUM (CALCIUM) [Concomitant]
  5. ERGOCALCIFEROL [Concomitant]

REACTIONS (4)
  - ARTHRALGIA [None]
  - BLOOD PARATHYROID HORMONE DECREASED [None]
  - FEMUR FRACTURE [None]
  - PATHOLOGICAL FRACTURE [None]
